FAERS Safety Report 9044442 (Version 3)
Quarter: 2013Q2

REPORT INFORMATION
  Report Type: Report from Study
  Country: JP (occurrence: JP)
  Receive Date: 20130131
  Receipt Date: 20130627
  Transmission Date: 20140414
  Serious: Yes (Hospitalization)
  Sender: FDA-Public Use
  Company Number: JP-009507513-2012SP016516

PATIENT
  Age: 68 Year
  Sex: Female
  Weight: 48 kg

DRUGS (14)
  1. PEGINTRON [Suspect]
     Indication: CHRONIC HEPATITIS C
     Dosage: 70 MICROGRAM, UNK
     Route: 058
     Dates: start: 20120123, end: 20120308
  2. REBETOL [Suspect]
     Indication: CHRONIC HEPATITIS C
     Dosage: 600 MG, QD
     Route: 048
     Dates: start: 20120123, end: 20120308
  3. TELAVIC [Suspect]
     Indication: CHRONIC HEPATITIS C
     Dosage: 2250 MG, QD
     Route: 048
     Dates: start: 20120123, end: 20120308
  4. DERMOVATE [Concomitant]
     Dosage: UNK
     Route: 061
     Dates: start: 20120130, end: 20120205
  5. PREDONINE [Concomitant]
     Dosage: 30 MG, QD
     Dates: start: 20120310, end: 2012
  6. PREDONINE [Concomitant]
     Dosage: 20 MG, QD
     Dates: start: 20120314, end: 2012
  7. PREDONINE [Concomitant]
     Dosage: 15 MG, QD
     Dates: start: 20120318, end: 20120405
  8. PREDONINE [Concomitant]
     Dosage: 30 MG, QD
     Dates: start: 20120406, end: 20120415
  9. DECADRON (DEXAMETHASONE) [Concomitant]
     Dosage: 3 MG, QD
     Route: 048
     Dates: start: 20120416
  10. DECADRON (DEXAMETHASONE) [Concomitant]
     Dosage: 4.5 MG, QD, THE DOSE WAS GRADUALLY REDUCED TO 0.5 MG PER WEEK
     Route: 048
     Dates: start: 20120423
  11. RINDERON (BETAMETHASONE) [Concomitant]
     Dosage: 9 DF, QD
  12. RINDERON (BETAMETHASONE) [Concomitant]
     Dosage: 5 DF, QD
  13. DECADRON (DEXAMETHASONE) [Concomitant]
     Dosage: 2.5 MG, QD
     Route: 048
     Dates: start: 20120528
  14. DECADRON (DEXAMETHASONE) [Concomitant]
     Dosage: 3 MG, QD
     Route: 048
     Dates: start: 20120531

REACTIONS (2)
  - Toxic skin eruption [Not Recovered/Not Resolved]
  - Drug reaction with eosinophilia and systemic symptoms [Unknown]
